FAERS Safety Report 16617451 (Version 1)
Quarter: 2019Q3

REPORT INFORMATION
  Report Type: Spontaneous
  Country: US (occurrence: US)
  Receive Date: 20190723
  Receipt Date: 20190723
  Transmission Date: 20191004
  Serious: No
  Sender: FDA-Public Use
  Company Number: US-IGSA-SR10008764

PATIENT
  Age: 78 Year
  Sex: Male
  Weight: 97.7 kg

DRUGS (11)
  1. BENADRYL [Concomitant]
     Active Substance: DIPHENHYDRAMINE HYDROCHLORIDE
     Indication: PREMEDICATION
     Dosage: 25 MG, UNK
     Route: 048
     Dates: start: 20190626, end: 20190626
  2. PREDNISONE. [Concomitant]
     Active Substance: PREDNISONE
     Indication: PREMEDICATION
     Dosage: 20 MG, UNK
     Route: 048
     Dates: start: 20190626, end: 20190626
  3. ASPIRIN                            /00002701/ [Concomitant]
     Active Substance: ASPIRIN
     Dosage: 81 MG, QD
     Route: 048
  4. CELLCEPT [Concomitant]
     Active Substance: MYCOPHENOLATE MOFETIL\MYCOPHENOLATE MOFETIL HYDROCHLORIDE
     Dosage: 1500 MG, BID
     Route: 048
  5. GAMUNEX-C [Suspect]
     Active Substance: HUMAN IMMUNOGLOBULIN G
     Indication: POLYMYOSITIS
     Dosage: 60 G, Q.M.T.
     Route: 042
     Dates: start: 20190626, end: 20190626
  6. GAMUNEX-C [Suspect]
     Active Substance: HUMAN IMMUNOGLOBULIN G
     Indication: MYOPATHY
     Dosage: 10 G, Q.M.T.
     Route: 042
     Dates: start: 20190626, end: 20190626
  7. GAMUNEX-C [Suspect]
     Active Substance: HUMAN IMMUNOGLOBULIN G
     Dosage: 70 G, Q.M.T.
     Route: 042
     Dates: start: 20190103
  8. VITAMIN D                          /00107901/ [Concomitant]
     Active Substance: ERGOCALCIFEROL
     Dosage: 1000 IU, UNK
     Route: 048
  9. GAMUNEX-C [Suspect]
     Active Substance: HUMAN IMMUNOGLOBULIN G
     Dosage: UNK
  10. TYLENOL [Concomitant]
     Active Substance: ACETAMINOPHEN
     Indication: PREMEDICATION
     Dosage: 1000 MG, UNK
     Route: 048
     Dates: start: 20190626, end: 20190626
  11. LEVOTHYROXINE. [Concomitant]
     Active Substance: LEVOTHYROXINE
     Dosage: 50 ?G, QD
     Route: 048

REACTIONS (6)
  - Swelling face [Recovered/Resolved]
  - Lip swelling [Recovered/Resolved]
  - Erythema [Recovered/Resolved]
  - Swollen tongue [Recovered/Resolved]
  - Ear swelling [Recovered/Resolved]
  - Urticaria [Recovered/Resolved]

NARRATIVE: CASE EVENT DATE: 20190626
